FAERS Safety Report 6859550-0 (Version None)
Quarter: 2010Q3

REPORT INFORMATION
  Report Type: 
  Country: None (occurrence: None)
  Receive Date: 20100719
  Receipt Date: 20080310
  Transmission Date: 20110219
  Serious: No
  Sender: FDA-Public Use
  Company Number: US-PFIZER INC-2008020265

PATIENT
  Sex: Female
  Weight: 74.1 kg

DRUGS (8)
  1. CHANTIX [Suspect]
     Indication: SMOKING CESSATION THERAPY
     Route: 048
     Dates: start: 20060801
  2. ACIPHEX [Concomitant]
  3. ALL OTHER THERAPEUTIC PRODUCTS [Concomitant]
  4. LASIX [Concomitant]
  5. DRUG, UNSPECIFIED [Concomitant]
  6. MOMETASONE FUROATE [Concomitant]
  7. FORADIL [Concomitant]
  8. FLUTICASONE [Concomitant]

REACTIONS (4)
  - DYSGEUSIA [None]
  - GASTROINTESTINAL MOTILITY DISORDER [None]
  - SLEEP DISORDER [None]
  - WEIGHT DECREASED [None]
